FAERS Safety Report 4382439-6 (Version None)
Quarter: 2004Q2

REPORT INFORMATION
  Report Type: 
  Country: None (occurrence: None)
  Receive Date: 20040622
  Receipt Date: 20040611
  Transmission Date: 20050107
  Serious: Yes (Disabling)
  Sender: FDA-Public Use
  Company Number: FR-BRISTOL-MYERS SQUIBB COMPANY-12613261

PATIENT
  Age: 66 Year
  Sex: Male

DRUGS (3)
  1. HYDREA [Suspect]
     Dosage: THERAPY INITIATION
     Route: 048
     Dates: start: 20020326, end: 20020326
  2. LODOZ [Concomitant]
  3. KARDEGIC [Concomitant]

REACTIONS (2)
  - MELANOSIS [None]
  - TOOTH DISORDER [None]
